FAERS Safety Report 9140354 (Version 1)
Quarter: 2013Q1

REPORT INFORMATION
  Report Type: Spontaneous
  Country: US (occurrence: US)
  Receive Date: 20130305
  Receipt Date: 20130305
  Transmission Date: 20140127
  Serious: No
  Sender: FDA-Public Use
  Company Number: US-BAYER-2013-027489

PATIENT
  Age: 56 Year
  Sex: Male

DRUGS (2)
  1. CLIMARA [Suspect]
     Indication: TRANSGENDER HORMONAL THERAPY
     Dosage: 2 MG, BIW
     Route: 062
     Dates: start: 201201, end: 201203
  2. CLIMARA [Suspect]
     Indication: TRANSGENDER HORMONAL THERAPY
     Dosage: 37.5 MG, UNK

REACTIONS (3)
  - Application site irritation [None]
  - Application site erosion [None]
  - Oestradiol abnormal [None]
